FAERS Safety Report 18924957 (Version 3)
Quarter: 2021Q2

REPORT INFORMATION
  Report Type: Spontaneous
  Country: US (occurrence: US)
  Receive Date: 20210222
  Receipt Date: 20210526
  Transmission Date: 20210717
  Serious: No
  Sender: FDA-Public Use
  Company Number: US-PFIZER INC-2021160319

PATIENT
  Age: 26 Year
  Sex: Female

DRUGS (7)
  1. DROSPIRENONE/ETHINYLESTRADIOL/LEVOMEFOLIC ACID [Concomitant]
     Dosage: UNK
  2. XELJANZ [Suspect]
     Active Substance: TOFACITINIB CITRATE
     Indication: COLITIS ULCERATIVE
     Dosage: 10 MG, 2X/DAY
     Route: 048
     Dates: start: 202011
  3. HYDROCORTISONE ACETATE. [Concomitant]
     Active Substance: HYDROCORTISONE ACETATE
     Dosage: 0.5 %
  4. BIOTIN [Concomitant]
     Active Substance: BIOTIN
     Dosage: UNK
  5. DUPIXENT [Suspect]
     Active Substance: DUPILUMAB
     Indication: DERMATITIS ATOPIC
     Dosage: 300 MG [QOW (EVERY OTHER WEEK)]
     Route: 058
     Dates: start: 20200918
  6. MESALAMINE. [Concomitant]
     Active Substance: MESALAMINE
     Dosage: 1.2 G
  7. XELJANZ [Suspect]
     Active Substance: TOFACITINIB CITRATE
     Indication: DERMATITIS ATOPIC
     Dosage: 15 MG, 2X/DAY
     Route: 048
     Dates: start: 202011

REACTIONS (3)
  - Prescribed overdose [Unknown]
  - Tachycardia [Unknown]
  - Fatigue [Unknown]

NARRATIVE: CASE EVENT DATE: 202011
